FAERS Safety Report 13689914 (Version 1)
Quarter: 2017Q2

REPORT INFORMATION
  Report Type: Spontaneous
  Country: FR (occurrence: FR)
  Receive Date: 20170626
  Receipt Date: 20170626
  Transmission Date: 20170830
  Serious: Yes (Hospitalization, Other)
  Sender: FDA-Public Use
  Company Number: FR-009507513-1706FRA006787

PATIENT
  Age: 83 Year
  Sex: Female

DRUGS (9)
  1. ESMERON [Suspect]
     Active Substance: ROCURONIUM BROMIDE
     Indication: NEUROMUSCULAR BLOCKING THERAPY
     Dosage: 10 MG, ONCE
     Route: 042
     Dates: start: 20160226, end: 20160226
  2. ESMERON [Suspect]
     Active Substance: ROCURONIUM BROMIDE
     Indication: INDUCTION OF ANAESTHESIA
     Dosage: 80 MG, ONCE
     Route: 042
     Dates: start: 20160226, end: 20160226
  3. BRIDION [Suspect]
     Active Substance: SUGAMMADEX
     Indication: NEUROMUSCULAR BLOCKADE REVERSAL
     Dosage: 0.25 MG/KG, ONCE
     Route: 040
     Dates: start: 20160226, end: 20160226
  4. CEFUROXIME. [Concomitant]
     Active Substance: CEFUROXIME
     Indication: ANTIBIOTIC PROPHYLAXIS
     Dosage: UNK
     Dates: start: 20160226
  5. SUFENTANIL [Concomitant]
     Active Substance: SUFENTANIL
     Indication: MAINTENANCE OF ANAESTHESIA
  6. PROPOFOL. [Concomitant]
     Active Substance: PROPOFOL
     Indication: INDUCTION OF ANAESTHESIA
     Dosage: UNK
     Dates: start: 20160226, end: 20160226
  7. PLASMION [Concomitant]
     Active Substance: GELATIN
     Dosage: UNK, ROUTE OF ADMINISTRATION: INFUSION LINE
     Dates: start: 20160226, end: 20160226
  8. SUFENTANIL [Concomitant]
     Active Substance: SUFENTANIL
     Indication: INDUCTION OF ANAESTHESIA
     Dosage: UNK
     Dates: start: 20160226, end: 20160226
  9. SEVOFLURANE. [Concomitant]
     Active Substance: SEVOFLURANE
     Indication: MAINTENANCE OF ANAESTHESIA
     Dosage: UNK
     Dates: start: 20160226, end: 20160226

REACTIONS (2)
  - Anaphylactic shock [Recovered/Resolved]
  - Type III immune complex mediated reaction [Recovered/Resolved]

NARRATIVE: CASE EVENT DATE: 20160226
